FAERS Safety Report 15003670 (Version 1)
Quarter: 2018Q2

REPORT INFORMATION
  Report Type: Spontaneous
  Country: FR (occurrence: FR)
  Receive Date: 20180613
  Receipt Date: 20180613
  Transmission Date: 20180711
  Serious: Yes (Hospitalization)
  Sender: FDA-Public Use
  Company Number: FR-TEVA-2018-FR-906069

PATIENT
  Age: 71 Year
  Sex: Female
  Weight: 63 kg

DRUGS (2)
  1. PACLITAXEL. [Suspect]
     Active Substance: PACLITAXEL
     Indication: ENDOMETRIAL ADENOCARCINOMA
     Dosage: 21-DAY CYCLE
     Route: 041
     Dates: start: 20180308
  2. CARBOPLATINE HOSPIRA [Suspect]
     Active Substance: CARBOPLATIN
     Indication: ENDOMETRIAL ADENOCARCINOMA
     Dosage: 21-DAY CYCLE
     Route: 041
     Dates: start: 20180308

REACTIONS (3)
  - Mastitis [Recovering/Resolving]
  - Administration site extravasation [Recovered/Resolved]
  - Administration site dermatitis [Recovering/Resolving]

NARRATIVE: CASE EVENT DATE: 20180308
